FAERS Safety Report 23885604 (Version 1)
Quarter: 2024Q2

REPORT INFORMATION
  Report Type: Spontaneous
  Country: ES (occurrence: ES)
  Receive Date: 20240522
  Receipt Date: 20240522
  Transmission Date: 20240716
  Serious: Yes (Other)
  Sender: FDA-Public Use
  Company Number: None

PATIENT
  Age: 42 Year
  Sex: Male

DRUGS (2)
  1. NEURONTIN [Suspect]
     Active Substance: GABAPENTIN
     Indication: Nicotine dependence
     Dosage: UNK,(30 CAPSULES)
     Route: 048
     Dates: start: 20240417
  2. ACETAMINOPHEN [Suspect]
     Active Substance: ACETAMINOPHEN
     Indication: Pain
     Dosage: GENERIC PHARMACEUTICAL EQUIVALENT, 20 TABLETS
     Route: 048
     Dates: start: 20240417

REACTIONS (2)
  - Psychomotor hyperactivity [Recovering/Resolving]
  - Suicide attempt [Recovering/Resolving]

NARRATIVE: CASE EVENT DATE: 20240417
